FAERS Safety Report 9693280 (Version 1)
Quarter: 2013Q4

REPORT INFORMATION
  Report Type: Spontaneous
  Country: FR (occurrence: FR)
  Receive Date: 20131118
  Receipt Date: 20131118
  Transmission Date: 20140711
  Serious: Yes (Death)
  Sender: FDA-Public Use
  Company Number: FR-SA-2013SA117484

PATIENT
  Age: 79 Year
  Sex: Male

DRUGS (36)
  1. LASILIX [Suspect]
     Indication: PRODUCT USED FOR UNKNOWN INDICATION
     Route: 048
     Dates: start: 20130902, end: 20130904
  2. LASILIX [Suspect]
     Indication: PRODUCT USED FOR UNKNOWN INDICATION
     Route: 048
     Dates: start: 20130905, end: 20130930
  3. ROVAMYCINE [Suspect]
     Indication: PRODUCT USED FOR UNKNOWN INDICATION
     Dosage: DOSE: 6 MIU
     Route: 048
     Dates: start: 20130920, end: 20130930
  4. CORTANCYL [Suspect]
     Indication: PRODUCT USED FOR UNKNOWN INDICATION
     Route: 048
     Dates: start: 20130922, end: 20130930
  5. RENVELA [Suspect]
     Indication: PRODUCT USED FOR UNKNOWN INDICATION
     Dosage: STRENGTH: 800 MG; 4 TABLETS PER DAY
     Route: 048
     Dates: start: 20130904, end: 20130930
  6. SOLIRIS [Suspect]
     Indication: HAEMOLYTIC URAEMIC SYNDROME
     Route: 042
     Dates: start: 20130905
  7. SOLIRIS [Suspect]
     Indication: HAEMOLYTIC URAEMIC SYNDROME
     Route: 042
     Dates: start: 20130927, end: 20130928
  8. SOLIRIS [Suspect]
     Indication: HAEMOLYTIC URAEMIC SYNDROME
     Route: 065
     Dates: start: 20130930, end: 20130930
  9. SOLIRIS [Suspect]
     Indication: HAEMOLYTIC URAEMIC SYNDROME
     Route: 042
     Dates: start: 20130912
  10. SOLIRIS [Suspect]
     Indication: HAEMOLYTIC URAEMIC SYNDROME
     Route: 042
     Dates: start: 20130918
  11. SOLIRIS [Suspect]
     Indication: HAEMOLYTIC URAEMIC SYNDROME
     Route: 042
     Dates: start: 20130924, end: 20130925
  12. SOLIRIS [Suspect]
     Indication: HAEMOLYTIC URAEMIC SYNDROME
     Route: 042
     Dates: start: 20130926, end: 20130926
  13. REPAGLINIDE [Suspect]
     Indication: DIABETES MELLITUS
     Route: 048
     Dates: start: 20130924, end: 20130930
  14. AMLODIPINE [Suspect]
     Indication: HYPERTENSION
     Route: 048
     Dates: start: 20130830, end: 20130930
  15. INEXIUM [Suspect]
     Indication: PRODUCT USED FOR UNKNOWN INDICATION
     Route: 048
     Dates: start: 20130830, end: 20130930
  16. MIANSERINE [Suspect]
     Indication: PRODUCT USED FOR UNKNOWN INDICATION
     Route: 048
     Dates: start: 20130909, end: 20130930
  17. LEDERFOLIN [Suspect]
     Indication: PRODUCT USED FOR UNKNOWN INDICATION
     Dosage: STRENGTH: 25 MG
     Route: 048
     Dates: start: 20130928, end: 20130930
  18. MIRCERA [Suspect]
     Indication: PRODUCT USED FOR UNKNOWN INDICATION
     Dosage: STRENGTH: 100 UG/0.3 ML
     Route: 058
     Dates: start: 20130907, end: 20130907
  19. MIRCERA [Suspect]
     Indication: PRODUCT USED FOR UNKNOWN INDICATION
     Route: 058
     Dates: start: 20130921, end: 20130921
  20. CALCIDIA [Suspect]
     Indication: PRODUCT USED FOR UNKNOWN INDICATION
     Dosage: STRENGTH: 1.54 G
     Route: 048
     Dates: start: 20130904, end: 20130930
  21. CONTRAMAL [Suspect]
     Indication: PRODUCT USED FOR UNKNOWN INDICATION
     Dosage: 50 MG CAPSULES
     Route: 048
     Dates: start: 20130830, end: 20130930
  22. EUPRESSYL [Suspect]
     Indication: HYPERTENSION
     Route: 048
     Dates: start: 20130916, end: 20130926
  23. EUPRESSYL [Suspect]
     Indication: HYPERTENSION
     Route: 048
     Dates: start: 20130926, end: 20130930
  24. ARAVA [Concomitant]
     Indication: RHEUMATOID ARTHRITIS
     Dosage: FEQUENCY: EACH 48 HOURS
     Route: 048
     Dates: end: 20130828
  25. CORTANCYL [Concomitant]
     Route: 048
     Dates: end: 20130920
  26. OMEPRAZOLE [Concomitant]
     Route: 048
  27. DIAMICRON [Concomitant]
     Route: 048
  28. ZALDIAR [Concomitant]
     Dosage: DOSE: 1 TO 4
     Route: 048
  29. PENTACARINAT [Concomitant]
     Dosage: ONE AEROSOL ON 16-SEP-2013
     Dates: start: 20130916
  30. BROMAZEPAM [Concomitant]
     Dosage: DOSE: 3 TO 4, 0.5 TABLET/ DAY DURING HOSPITALIZATION
     Route: 048
  31. VITAMIN B12 [Concomitant]
     Route: 048
  32. LANTUS [Concomitant]
     Dates: start: 20130923
  33. SYMBICORT [Concomitant]
  34. BRONCHODUAL [Concomitant]
  35. VENTOLINE [Concomitant]
  36. ATROVENT [Concomitant]

REACTIONS (2)
  - Cardio-respiratory arrest [Fatal]
  - Cardiac arrest [Fatal]
